FAERS Safety Report 6253865-5 (Version None)
Quarter: 2009Q3

REPORT INFORMATION
  Report Type: 
  Country: None (occurrence: None)
  Receive Date: 20090702
  Receipt Date: 20071003
  Transmission Date: 20100115
  Serious: Yes (Other)
  Sender: FDA-Public Use
  Company Number: US-ASTRAZENECA-2006UW23122

PATIENT
  Age: 50 Year
  Sex: Female
  Weight: 129.3 kg

DRUGS (21)
  1. SEROQUEL [Suspect]
     Indication: DEPRESSION
     Route: 048
     Dates: start: 20030204
  2. SEROQUEL [Suspect]
     Indication: BIPOLAR DISORDER
     Route: 048
     Dates: start: 20030204
  3. SEROQUEL [Suspect]
     Indication: SLEEP DISORDER
     Route: 048
     Dates: start: 20030204
  4. SEROQUEL [Suspect]
     Route: 048
     Dates: start: 20030224, end: 20060330
  5. SEROQUEL [Suspect]
     Route: 048
     Dates: start: 20030224, end: 20060330
  6. SEROQUEL [Suspect]
     Route: 048
     Dates: start: 20030224, end: 20060330
  7. SEROQUEL [Suspect]
     Route: 048
     Dates: end: 20040909
  8. SEROQUEL [Suspect]
     Route: 048
     Dates: end: 20040909
  9. SEROQUEL [Suspect]
     Route: 048
     Dates: end: 20040909
  10. EFFEXOR XR [Concomitant]
     Dosage: 150 MG 3 TABLETS DAILY
     Route: 048
     Dates: start: 20020813
  11. PAXIL [Concomitant]
     Dosage: 20 - 40 MG
     Dates: start: 20010622
  12. TRAZODONE HCL [Concomitant]
     Dosage: 50 - 200 MG
     Dates: start: 20010622
  13. PROZAC [Concomitant]
     Route: 048
     Dates: start: 20030605
  14. ZYPREXA [Concomitant]
     Dates: start: 20041025
  15. ATIVAN [Concomitant]
     Indication: ANXIETY
     Dosage: 0.5 MG 1/2 OR 2 TABLET THRICE A DAY
     Dates: start: 20031212
  16. WELLBUTRIN [Concomitant]
     Dates: start: 20050121
  17. PROMETRIUM [Concomitant]
     Dates: start: 20030115
  18. PREDNISONE [Concomitant]
     Dates: start: 20030505
  19. DIOVAN [Concomitant]
     Dosage: 80 MG, 160/25 MG DISPENSED
     Dates: start: 20040422
  20. TIAZAC [Concomitant]
     Dosage: 360 MG, 420 MG DISPENSED
     Dates: start: 20030214
  21. RISPERDAL [Concomitant]
     Dosage: 0.5 - 1 MG
     Dates: start: 20060426

REACTIONS (5)
  - DIABETES MELLITUS [None]
  - DIABETES MELLITUS INADEQUATE CONTROL [None]
  - DIABETIC NEUROPATHY [None]
  - INSULIN RESISTANT DIABETES [None]
  - NEUROPATHY PERIPHERAL [None]
